FAERS Safety Report 5448576-X (Version None)
Quarter: 2007Q3

REPORT INFORMATION
  Report Type: 
  Country: None (occurrence: None)
  Receive Date: 20070911
  Receipt Date: 20070910
  Transmission Date: 20080115
  Serious: Yes (Other)
  Sender: FDA-Public Use
  Company Number: AU-BRISTOL-MYERS SQUIBB COMPANY-13901913

PATIENT
  Age: 60 Year

DRUGS (5)
  1. MONOPRIL [Suspect]
     Indication: DIABETES MELLITUS
     Route: 048
  2. METFORMIN HCL [Suspect]
     Indication: DIABETES MELLITUS
     Route: 048
     Dates: end: 20060218
  3. GLICLAZIDE [Suspect]
     Indication: DIABETES MELLITUS
     Route: 048
  4. INDOMETHACIN [Suspect]
     Indication: OSTEOARTHRITIS
     Dates: end: 20060218
  5. ASPIRIN [Suspect]

REACTIONS (2)
  - LACTIC ACIDOSIS [None]
  - RENAL FAILURE [None]
